FAERS Safety Report 9034635 (Version 1)
Quarter: 2013Q1

REPORT INFORMATION
  Report Type: Spontaneous
  Country: GB (occurrence: None)
  Receive Date: 20130111
  Receipt Date: 20130111
  Transmission Date: 20140127
  Serious: Yes (Other)
  Sender: FDA-Public Use
  Company Number: AUR-APL-2013-00057

PATIENT
  Age: 73 Year
  Sex: Female

DRUGS (10)
  1. CIPROFLOXACIN (CIPROFLOXACIN) [Suspect]
     Indication: COUGH
     Route: 048
     Dates: start: 20121123, end: 20121123
  2. CETIRIZINE (CETIRIZINE) [Concomitant]
  3. CHLORPHENAMINE (CHLORPHENAMINE) [Concomitant]
  4. DIGOXIN (DIGOXIN) [Concomitant]
  5. FERROUS SULPHATE (FERROUS SULFATE) [Concomitant]
  6. FOLIC ACID (FOLIC ACID) [Concomitant]
  7. FUROSEMIDE (FUROSEMIDE) [Concomitant]
  8. LANSOPRAZOLE (LANSOPRAZOLE) [Concomitant]
  9. PREDNISOLONE (PREDNISOLONE) [Concomitant]
  10. SPIRONOLACTONE (SPIRONOLACTONE) [Concomitant]

REACTIONS (6)
  - Inflammation [None]
  - Malaise [None]
  - Feeling hot [None]
  - Pruritus [None]
  - Headache [None]
  - Swelling [None]
